FAERS Safety Report 16872183 (Version 1)
Quarter: 2019Q4

REPORT INFORMATION
  Report Type: Report from Study
  Country: IT (occurrence: IT)
  Receive Date: 20191001
  Receipt Date: 20191001
  Transmission Date: 20200122
  Serious: Yes (Other)
  Sender: FDA-Public Use
  Company Number: IT-ROCHE-2415786

PATIENT

DRUGS (4)
  1. BEVACIZUMAB. [Suspect]
     Active Substance: BEVACIZUMAB
     Indication: COLORECTAL CANCER METASTATIC
     Dosage: ON DAY 1 OF EACH 14 DAY CYCLE
     Route: 065
  2. L-LEUCOVORIN [Suspect]
     Active Substance: LEUCOVORIN
     Indication: COLORECTAL CANCER METASTATIC
     Route: 065
  3. IRINOTECAN [Suspect]
     Active Substance: IRINOTECAN
     Indication: COLORECTAL CANCER METASTATIC
     Route: 065
  4. FLUOROURACIL. [Suspect]
     Active Substance: FLUOROURACIL
     Indication: COLORECTAL CANCER METASTATIC
     Route: 065

REACTIONS (13)
  - Mucosal inflammation [Unknown]
  - Alanine aminotransferase increased [Unknown]
  - Aspartate aminotransferase increased [Unknown]
  - Neutropenia [Unknown]
  - Nausea [Unknown]
  - Diarrhoea [Unknown]
  - Blood bilirubin increased [Unknown]
  - Thrombocytopenia [Unknown]
  - Epistaxis [Unknown]
  - Hypertension [Unknown]
  - Anaemia [Unknown]
  - Embolism [Unknown]
  - Asthenia [Unknown]
